FAERS Safety Report 7249941-0 (Version None)
Quarter: 2011Q1

REPORT INFORMATION
  Report Type: 
  Country: None (occurrence: None)
  Receive Date: 20110128
  Receipt Date: 20100903
  Transmission Date: 20110831
  Serious: No
  Sender: FDA-Public Use
  Company Number: A0885099A

PATIENT
  Age: 51 Year
  Sex: Male

DRUGS (2)
  1. THYROID MEDICATION [Concomitant]
  2. WELLBUTRIN XL [Suspect]
     Dosage: 150MG PER DAY
     Route: 048
     Dates: start: 20100820

REACTIONS (3)
  - PRODUCT QUALITY ISSUE [None]
  - INSOMNIA [None]
  - DRUG INEFFECTIVE [None]
